FAERS Safety Report 8840045 (Version 1)
Quarter: 2012Q4

REPORT INFORMATION
  Report Type: 
  Country: US (occurrence: US)
  Receive Date: 20121015
  Receipt Date: 20121015
  Transmission Date: 20130627
  Serious: No
  Sender: FDA-Public Use
  Company Number: US-PFIZER INC-2012252580

PATIENT
  Age: 59 Year
  Sex: Female
  Weight: 76.64 kg

DRUGS (3)
  1. EPLERENONE [Suspect]
     Indication: BLOOD PRESSURE MANAGEMENT
     Dosage: 50 mg + 25 mg, 1x/day
     Route: 048
     Dates: start: 2009
  2. EPLERENONE [Suspect]
     Dosage: 50 mg + 25 mg, 1x/day
     Route: 048
     Dates: start: 2009
  3. BENADRYL [Concomitant]
     Indication: HYPERSENSITIVITY
     Dosage: UNK

REACTIONS (2)
  - Drug ineffective [Unknown]
  - Malaise [Unknown]
